FAERS Safety Report 6053726-0 (Version None)
Quarter: 2009Q1

REPORT INFORMATION
  Report Type: 
  Country: None (occurrence: None)
  Receive Date: 20090127
  Receipt Date: 20080909
  Transmission Date: 20090719
  Serious: No
  Sender: FDA-Public Use
  Company Number: US-TEVA-177247USA

PATIENT
  Sex: Female

DRUGS (7)
  1. COPAXONE [Suspect]
     Indication: MULTIPLE SCLEROSIS
     Route: 058
     Dates: start: 20080201, end: 20080819
  2. CONJUGATED ESTROGENS [Concomitant]
  3. FLUOXETINE HYDROCHLORIDE [Concomitant]
  4. AMANTADINE HCL [Concomitant]
  5. LORAZEPAM [Concomitant]
  6. FERROUS SULFATE TAB [Concomitant]
  7. CHONDROITIN [Concomitant]

REACTIONS (1)
  - HEPATIC ENZYME INCREASED [None]
